FAERS Safety Report 25721076 (Version 1)
Quarter: 2025Q3

REPORT INFORMATION
  Report Type: Spontaneous
  Country: US (occurrence: US)
  Receive Date: 20250825
  Receipt Date: 20250825
  Transmission Date: 20251021
  Serious: Yes (Hospitalization)
  Sender: MACLEODS
  Company Number: US-MLMSERVICE-20160201-0152775-1

PATIENT

DRUGS (5)
  1. ESOMEPRAZOLE [Suspect]
     Active Substance: ESOMEPRAZOLE
     Indication: Product used for unknown indication
     Route: 065
  2. CAPECITABINE [Suspect]
     Active Substance: CAPECITABINE
     Indication: Squamous cell carcinoma
     Dosage: ON ALTERNATE WEEKS FOR APPROXIMATELY 3 MONTHS
     Route: 048
  3. PAROXETINE [Suspect]
     Active Substance: PAROXETINE
     Indication: Product used for unknown indication
     Route: 065
  4. SIMVASTATIN [Suspect]
     Active Substance: SIMVASTATIN
     Indication: Product used for unknown indication
     Route: 065
  5. ACYCLOVIR [Concomitant]
     Active Substance: ACYCLOVIR
     Indication: Product used for unknown indication
     Route: 065

REACTIONS (3)
  - Meningitis cryptococcal [Not Recovered/Not Resolved]
  - Drug interaction [Unknown]
  - Off label use [Unknown]
